FAERS Safety Report 15962865 (Version 1)
Quarter: 2019Q1

REPORT INFORMATION
  Report Type: Spontaneous
  Country: US (occurrence: US)
  Receive Date: 20190214
  Receipt Date: 20190214
  Transmission Date: 20190417
  Serious: Yes (Other)
  Sender: FDA-Public Use
  Company Number: US-PFIZER INC-2019062332

PATIENT
  Sex: Male

DRUGS (3)
  1. CISPLATINUM [Suspect]
     Active Substance: CISPLATIN
     Indication: SEMINOMA
  2. BLEOMYCIN SULFATE [Suspect]
     Active Substance: BLEOMYCIN SULFATE
     Indication: SEMINOMA
     Dosage: UNK
  3. VINBLASTINE [Suspect]
     Active Substance: VINBLASTINE
     Indication: SEMINOMA
     Dosage: UNK

REACTIONS (1)
  - Bone marrow failure [Unknown]
